FAERS Safety Report 8312428-8 (Version None)
Quarter: 2012Q2

REPORT INFORMATION
  Report Type: 
  Country: None (occurrence: None)
  Receive Date: 20120425
  Receipt Date: 20120416
  Transmission Date: 20120825
  Serious: Yes (Hospitalization, Other)
  Sender: FDA-Public Use
  Company Number: US-ELI_LILLY_AND_COMPANY-US201109006296

PATIENT
  Sex: Female

DRUGS (11)
  1. VITAMIN B1 TAB [Concomitant]
  2. FORTEO [Suspect]
     Dosage: 20 UG, QD
  3. FORTEO [Suspect]
     Dosage: 20 UG, QD
  4. FORTEO [Suspect]
     Indication: OSTEOPOROSIS
     Dosage: 20 UG, QD
     Route: 058
     Dates: start: 20110202
  5. FORTEO [Suspect]
     Dosage: 20 UG, QD
     Route: 058
  6. MAGNESIUM [Concomitant]
  7. GARLIC [Concomitant]
  8. ENALAPRIL MALEATE [Concomitant]
  9. CALCIUM [Concomitant]
  10. VITAMIN D [Concomitant]
  11. FORTEO [Suspect]
     Dosage: 20 UG, QD
     Route: 058

REACTIONS (5)
  - FALL [None]
  - VASCULAR OCCLUSION [None]
  - ARTHRITIS [None]
  - LOWER LIMB FRACTURE [None]
  - PERIPHERAL COLDNESS [None]
